FAERS Safety Report 7932232-X (Version None)
Quarter: 2011Q4

REPORT INFORMATION
  Report Type: 
  Country: None (occurrence: None)
  Receive Date: 20111121
  Receipt Date: 20111019
  Transmission Date: 20120403
  Serious: No
  Sender: FDA-Public Use
  Company Number: US-AMGEN-USASP2011050436

PATIENT
  Age: 60 Year
  Sex: Female
  Weight: 159.4 kg

DRUGS (6)
  1. METOPROLOL TARTRATE [Concomitant]
  2. LEVOTHYROXINE SODIUM [Concomitant]
  3. ENALAPRIL MALEATE [Concomitant]
  4. ZOLOTIN [Concomitant]
  5. VECTIBIX [Suspect]
     Indication: COLORECTAL CANCER METASTATIC
     Dosage: 6 MG/KG, Q2WK
     Route: 042
     Dates: start: 20110926
  6. NEXIUM [Concomitant]

REACTIONS (3)
  - COUGH [None]
  - THROAT IRRITATION [None]
  - CHEST DISCOMFORT [None]
